FAERS Safety Report 15306130 (Version 2)
Quarter: 2019Q1

REPORT INFORMATION
  Report Type: Spontaneous
  Country: US (occurrence: US)
  Receive Date: 20180822
  Receipt Date: 20190219
  Transmission Date: 20190417
  Serious: No
  Sender: FDA-Public Use
  Company Number: US-PFIZER INC-2018334556

PATIENT
  Age: 60 Year
  Sex: Male
  Weight: 105.69 kg

DRUGS (1)
  1. LYRICA [Suspect]
     Active Substance: PREGABALIN
     Indication: PAIN IN EXTREMITY
     Dosage: 50 MG, 3X/DAY

REACTIONS (1)
  - Drug effect incomplete [Unknown]
